FAERS Safety Report 4305306-2 (Version None)
Quarter: 2004Q1

REPORT INFORMATION
  Report Type: 
  Country: None (occurrence: None)
  Receive Date: 20040226
  Receipt Date: 20030404
  Transmission Date: 20041129
  Serious: No
  Sender: FDA-Public Use
  Company Number: US-BRISTOL-MYERS SQUIBB COMPANY-12231890

PATIENT
  Age: 44 Year
  Sex: Female
  Weight: 336 kg

DRUGS (2)
  1. PARAPLATIN [Suspect]
     Indication: OVARIAN CANCER
  2. TAXOL [Suspect]
     Indication: OVARIAN CANCER

REACTIONS (1)
  - RASH [None]
